FAERS Safety Report 6111758-8 (Version None)
Quarter: 2009Q1

REPORT INFORMATION
  Report Type: 
  Country: None (occurrence: None)
  Receive Date: 20090311
  Receipt Date: 20080529
  Transmission Date: 20090719
  Serious: No
  Sender: FDA-Public Use
  Company Number: US-TYCO HEALTHCARE/MALLINCKRODT-T200800921

PATIENT

DRUGS (2)
  1. RESTORIL [Suspect]
     Dates: start: 20080201
  2. CLONAZEPAM [Suspect]

REACTIONS (2)
  - ANXIETY [None]
  - TINNITUS [None]
